FAERS Safety Report 22985228 (Version 3)
Quarter: 2025Q4

REPORT INFORMATION
  Report Type: Report from Study
  Country: CA (occurrence: CA)
  Receive Date: 20230926
  Receipt Date: 20251112
  Transmission Date: 20260117
  Serious: Yes (Other)
  Sender: TAKEDA
  Company Number: CA-TAKEDA-2018TUS036555

PATIENT
  Age: 28 Year
  Sex: Female

DRUGS (7)
  1. VEDOLIZUMAB [Suspect]
     Active Substance: VEDOLIZUMAB
     Indication: Crohn^s disease
     Dosage: 600 MILLIGRAM
  2. VEDOLIZUMAB [Suspect]
     Active Substance: VEDOLIZUMAB
     Dosage: 300 MILLIGRAM
  3. VEDOLIZUMAB [Suspect]
     Active Substance: VEDOLIZUMAB
     Dosage: 300 MILLIGRAM
  4. VEDOLIZUMAB [Suspect]
     Active Substance: VEDOLIZUMAB
     Dosage: 300 MILLIGRAM, Q4WEEKS
     Dates: start: 20191101
  5. VEDOLIZUMAB [Suspect]
     Active Substance: VEDOLIZUMAB
     Dosage: 300 MILLIGRAM, Q4WEEKS
  6. VEDOLIZUMAB [Suspect]
     Active Substance: VEDOLIZUMAB
     Dosage: 300 MILLIGRAM, Q4WEEKS
  7. VEDOLIZUMAB [Suspect]
     Active Substance: VEDOLIZUMAB
     Dosage: 300 MILLIGRAM, Q4WEEKS
     Dates: end: 20251009

REACTIONS (9)
  - Crohn^s disease [Recovering/Resolving]
  - Drug ineffective [Unknown]
  - Off label use [Unknown]
  - Gilbert^s syndrome [Unknown]
  - Serum ferritin decreased [Unknown]
  - Endometriosis [Unknown]
  - Fistula [Unknown]
  - Liver function test increased [Unknown]
  - Blood bilirubin increased [Unknown]

NARRATIVE: CASE EVENT DATE: 20181218
